FAERS Safety Report 25304430 (Version 1)
Quarter: 2025Q2

REPORT INFORMATION
  Report Type: Spontaneous
  Country: US (occurrence: None)
  Receive Date: 20250512
  Receipt Date: 20250512
  Transmission Date: 20250717
  Serious: Yes (Other)
  Sender: FDA-CTU
  Company Number: None

PATIENT
  Age: 76 Year
  Sex: Female
  Weight: 55.35 kg

DRUGS (18)
  1. CARBAMAZEPINE [Suspect]
     Active Substance: CARBAMAZEPINE
     Indication: Sinusitis
     Dosage: 1 TABLET (S)  TWICE A DAY ORAL ?
     Route: 048
     Dates: start: 20241004, end: 20241004
  2. CARBAMAZEPINE [Suspect]
     Active Substance: CARBAMAZEPINE
     Indication: Sinus pain
  3. air supra [Concomitant]
  4. AZELASTINE [Concomitant]
     Active Substance: AZELASTINE
  5. FAMOTIDINE [Concomitant]
     Active Substance: FAMOTIDINE
  6. FLECAINIDE [Concomitant]
     Active Substance: FLECAINIDE
  7. LEFLUNOMIDE [Concomitant]
     Active Substance: LEFLUNOMIDE
  8. METHENAMINE HIPPURATE [Concomitant]
     Active Substance: METHENAMINE HIPPURATE
  9. MIEBO [Concomitant]
     Active Substance: PERFLUOROHEXYLOCTANE
  10. RESTASIS [Concomitant]
     Active Substance: CYCLOSPORINE
  11. PREMARIN [Concomitant]
     Active Substance: ESTROGENS, CONJUGATED
  12. LIDOCAINE PATCH [Concomitant]
     Active Substance: LIDOCAINE
  13. LIVALO [Concomitant]
     Active Substance: PITAVASTATIN CALCIUM
  14. genteel pm [Concomitant]
  15. vitaminD3 [Concomitant]
  16. TYLENOL [Concomitant]
     Active Substance: ACETAMINOPHEN
  17. PROBIOTICS NOS [Concomitant]
     Active Substance: PROBIOTICS NOS
  18. FISH OIL [Concomitant]
     Active Substance: FISH OIL

REACTIONS (5)
  - Headache [None]
  - Skin burning sensation [None]
  - Pain [None]
  - Discomfort [None]
  - Hair growth abnormal [None]

NARRATIVE: CASE EVENT DATE: 20241004
